FAERS Safety Report 8349720-7 (Version None)
Quarter: 2012Q2

REPORT INFORMATION
  Report Type: 
  Country: None (occurrence: None)
  Receive Date: 20120510
  Receipt Date: 20120502
  Transmission Date: 20120825
  Serious: Yes (Death, Hospitalization)
  Sender: FDA-Public Use
  Company Number: JP-SHIRE-ALL1-2011-05177

PATIENT
  Sex: Male
  Weight: 43 kg

DRUGS (2)
  1. IDURSULFASE [Suspect]
     Indication: MUCOPOLYSACCHARIDOSIS II
     Dosage: 6MG, 1X/WEEK
     Route: 041
     Dates: start: 20080708, end: 20120417
  2. LOSARTAN                           /01121602/ [Concomitant]
     Indication: MUCOPOLYSACCHARIDOSIS II
     Dosage: 50 MG, UNKNOWN
     Route: 065
     Dates: start: 20100706

REACTIONS (2)
  - TRACHEAL STENOSIS [None]
  - RESPIRATORY FAILURE [None]
